FAERS Safety Report 7582858-0 (Version None)
Quarter: 2011Q2

REPORT INFORMATION
  Report Type: 
  Country: None (occurrence: None)
  Receive Date: 20110630
  Receipt Date: 20110623
  Transmission Date: 20111010
  Serious: No
  Sender: FDA-Public Use
  Company Number: US-JNJFOC-20110611590

PATIENT
  Sex: Female
  Weight: 109.77 kg

DRUGS (6)
  1. DARVON [Concomitant]
     Indication: PAIN
     Route: 048
  2. DURAGESIC-100 [Suspect]
     Indication: SCIATICA
     Route: 062
     Dates: start: 20040101
  3. TOVIAZ [Concomitant]
     Indication: PRODUCT USED FOR UNKNOWN INDICATION
     Route: 048
  4. LYRICA [Concomitant]
     Indication: NEURALGIA
     Route: 048
  5. DURAGESIC-100 [Suspect]
     Indication: NEURALGIA
     Route: 062
     Dates: start: 20040101
  6. LANTUS [Concomitant]
     Indication: DIABETES MELLITUS
     Route: 058

REACTIONS (3)
  - DRUG ADMINISTERED AT INAPPROPRIATE SITE [None]
  - WRONG TECHNIQUE IN DRUG USAGE PROCESS [None]
  - PRODUCT QUALITY ISSUE [None]
